FAERS Safety Report 4704257-9 (Version None)
Quarter: 2005Q2

REPORT INFORMATION
  Report Type: 
  Country: None (occurrence: None)
  Receive Date: 20050628
  Receipt Date: 20050616
  Transmission Date: 20051028
  Serious: Yes (Other)
  Sender: FDA-Public Use
  Company Number: 2005089853

PATIENT
  Age: 73 Year
  Sex: Male
  Weight: 80 kg

DRUGS (4)
  1. VIAGRA [Suspect]
     Indication: ERECTILE DYSFUNCTION
     Dosage: ORAL
     Route: 048
  2. GLICLAZIDE (GLICLAZIDE) [Concomitant]
  3. METFORMIN (METFORMIN) [Concomitant]
  4. EPROSARTAN (EPROSARTAN) [Concomitant]

REACTIONS (1)
  - BLINDNESS UNILATERAL [None]
